FAERS Safety Report 8126347 (Version 2)
Quarter: 2013Q2

REPORT INFORMATION
  Report Type: Report from Study
  Country: US (occurrence: US)
  Receive Date: 20110908
  Receipt Date: 20130506
  Transmission Date: 20140414
  Serious: Yes (Other)
  Sender: FDA-Public Use
  Company Number: US-ROCHE-799662

PATIENT
  Sex: 0

DRUGS (1)
  1. CAPECITABINE [Suspect]
     Indication: ORGAN TRANSPLANT
     Dosage: DOSE REPORTED: 1 G/M2/D. ON DAYS 1-14 OF 21 DAYS CYCLE.
     Route: 048

REACTIONS (8)
  - Mucosal inflammation [Unknown]
  - Nausea [Unknown]
  - Vomiting [Unknown]
  - Diarrhoea [Unknown]
  - Palmar-plantar erythrodysaesthesia syndrome [Unknown]
  - Fatigue [Unknown]
  - Hyperuricaemia [Unknown]
  - Anaemia [Unknown]
